FAERS Safety Report 11377823 (Version 1)
Quarter: 2015Q3

REPORT INFORMATION
  Report Type: Spontaneous
  Country: US (occurrence: US)
  Receive Date: 20150811
  Receipt Date: 20150811
  Transmission Date: 20151125
  Serious: No
  Sender: FDA-Public Use
  Company Number: US-ELI_LILLY_AND_COMPANY-US200909003673

PATIENT
  Age: 30 Year
  Sex: Male

DRUGS (3)
  1. HUMULIN R [Suspect]
     Active Substance: INSULIN HUMAN
  2. NOVOLIN [Concomitant]
     Active Substance: INSULIN HUMAN
  3. LANTUS [Concomitant]
     Active Substance: INSULIN GLARGINE

REACTIONS (1)
  - Intercepted drug dispensing error [Not Recovered/Not Resolved]

NARRATIVE: CASE EVENT DATE: 200909
